FAERS Safety Report 13941696 (Version 1)
Quarter: 2017Q3

REPORT INFORMATION
  Report Type: Spontaneous
  Country: US (occurrence: US)
  Receive Date: 20170906
  Receipt Date: 20170906
  Transmission Date: 20171127
  Serious: No
  Sender: FDA-Public Use
  Company Number: None

PATIENT

DRUGS (1)
  1. HAND SANITIZER FOAM (MEDLINE MSC 09740) [Suspect]
     Active Substance: ALCOHOL
     Indication: THERAPEUTIC SKIN CARE TOPICAL
     Route: 061
     Dates: start: 20170807, end: 20170905

REACTIONS (2)
  - Product formulation issue [None]
  - Dermatitis contact [None]

NARRATIVE: CASE EVENT DATE: 20170814
